FAERS Safety Report 15581656 (Version 1)
Quarter: 2018Q4

REPORT INFORMATION
  Report Type: Spontaneous
  Country: US (occurrence: US)
  Receive Date: 20181102
  Receipt Date: 20181102
  Transmission Date: 20190205
  Serious: No
  Sender: FDA-Public Use
  Company Number: US-RADIUS HEALTH INC.-2018US001300

PATIENT
  Age: 58 Year
  Sex: Female

DRUGS (1)
  1. TYMLOS [Suspect]
     Active Substance: ABALOPARATIDE
     Indication: OSTEOPOROSIS POSTMENOPAUSAL
     Dosage: 80 MCG, QD
     Route: 058
     Dates: start: 20180628, end: 20180708

REACTIONS (17)
  - Erythema [Recovered/Resolved]
  - Tinnitus [Recovered/Resolved]
  - Ear pain [Recovered/Resolved]
  - Back pain [Recovered/Resolved]
  - Feeling abnormal [Recovered/Resolved]
  - Eructation [Recovered/Resolved]
  - Back pain [Recovered/Resolved]
  - Eye symptom [Recovered/Resolved]
  - Palpitations [Recovered/Resolved]
  - Flushing [Not Recovered/Not Resolved]
  - Headache [Recovering/Resolving]
  - Muscle twitching [Not Recovered/Not Resolved]
  - Migraine [Recovered/Resolved]
  - Dyspepsia [Recovered/Resolved]
  - Abdominal discomfort [Not Recovered/Not Resolved]
  - Nausea [Recovered/Resolved]
  - Abdominal pain upper [Recovered/Resolved]

NARRATIVE: CASE EVENT DATE: 20130628
